FAERS Safety Report 8529238 (Version 2)
Quarter: 2012Q4

REPORT INFORMATION
  Report Type: 
  Country: US (occurrence: US)
  Receive Date: 20120425
  Receipt Date: 20120912
  Transmission Date: 20130627
  Serious: Yes (Hospitalization)
  Sender: FDA-Public Use
  Company Number: US-BAYER-2012-038697

PATIENT
  Age: 24 Year
  Sex: Female
  Weight: 54.42 kg

DRUGS (8)
  1. YAZ [Suspect]
     Indication: CONTRACEPTION
     Dosage: UNK
     Dates: start: 2006
  2. TYLENOL EXTRA STRENGTH [Concomitant]
     Indication: PAIN
     Dosage: 500 mg, UNK,every 4-6 hours
  3. BENADRYL [Concomitant]
     Indication: PRURITUS
     Dosage: 25 mg, UNK,1-2 cap,every 6 hours
     Route: 048
  4. ZOFRAN [Concomitant]
     Indication: NAUSEA
     Dosage: 4 mg, UNK,1 tab,every 8 hours
     Route: 048
  5. PERCOCET [Concomitant]
     Indication: PAIN
     Dosage: 5-325 mg,1-2 tabs,every 4 hours
     Route: 048
  6. ACETAMINOPHEN W/OXYCODONE [Concomitant]
     Indication: PAIN
     Dosage: 5-325 mg,1-2 tabs,every 4 hours
     Route: 048
  7. EPINEPHRINE [Concomitant]
     Indication: HYPERSENSITIVITY
     Dosage: 0.3 ml, UNK,0.3 mg/0.3 ml,inject 0.3 ml, once
     Route: 030
  8. ZANTAC [Concomitant]
     Dosage: 150 mg, UNK,1 tab,30 days.
     Route: 048

REACTIONS (4)
  - Cholelithiasis [None]
  - Gallbladder pain [None]
  - Injury [None]
  - Pain [None]
